FAERS Safety Report 11433078 (Version 2)
Quarter: 2016Q1

REPORT INFORMATION
  Report Type: Report from Study
  Country: US (occurrence: US)
  Receive Date: 20150829
  Receipt Date: 20160314
  Transmission Date: 20160525
  Serious: Yes (Life-Threatening, Hospitalization)
  Sender: FDA-Public Use
  Company Number: US-009507513-1508USA011787

PATIENT
  Age: 67 Year
  Sex: Male
  Weight: 79 kg

DRUGS (48)
  1. TEMSIROLIMUS [Suspect]
     Active Substance: TEMSIROLIMUS
     Dosage: 140 MG, ONCE (C1W4)
     Route: 042
     Dates: start: 20150722, end: 20150722
  2. ZYRTEC [Concomitant]
     Active Substance: CETIRIZINE HYDROCHLORIDE
     Indication: URTICARIA
     Dosage: 10 MG DAILY
     Route: 048
     Dates: start: 2013, end: 20150714
  3. LOPID [Concomitant]
     Active Substance: GEMFIBROZIL
     Indication: HYPERTRIGLYCERIDAEMIA
     Dosage: 600 MG, BID
     Dates: start: 20150701, end: 20150714
  4. PERCOCET [Concomitant]
     Active Substance: ACETAMINOPHEN\OXYCODONE HYDROCHLORIDE
     Indication: PAIN OF SKIN
     Dosage: 2 TABLET EVERY 6 HOURS AS NEEDED
     Dates: start: 20150612, end: 20150804
  5. VITAMINS (UNSPECIFIED) [Concomitant]
     Active Substance: VITAMINS
     Indication: ROUTINE HEALTH MAINTENANCE
     Dosage: 1 TABLET DAILY
     Route: 048
     Dates: start: 20150715
  6. DEXAMETHASONE. [Suspect]
     Active Substance: DEXAMETHASONE
     Dosage: 4 MG, EVERY 6 HOURS
     Route: 048
     Dates: start: 20150616, end: 20150617
  7. DEXAMETHASONE. [Suspect]
     Active Substance: DEXAMETHASONE
     Dosage: 4 MG, UNKNOWN
     Route: 048
     Dates: start: 20150717, end: 20150724
  8. DEXAMETHASONE. [Suspect]
     Active Substance: DEXAMETHASONE
     Indication: GLIOBLASTOMA
     Dosage: 10 MG, UNKNOWN
     Route: 042
     Dates: start: 20150716, end: 20150716
  9. TEMSIROLIMUS [Suspect]
     Active Substance: TEMSIROLIMUS
     Dosage: 140 MG, ONCE (C1W1)
     Route: 042
     Dates: start: 20150701, end: 20150701
  10. VALTREX [Concomitant]
     Active Substance: VALACYCLOVIR HYDROCHLORIDE
     Indication: HERPES SIMPLEX
     Dosage: 100 MG DAILY
     Route: 048
     Dates: start: 20150711, end: 20150726
  11. CLOTRIMAZOLE. [Concomitant]
     Active Substance: CLOTRIMAZOLE
     Indication: FUNGAL SKIN INFECTION
     Dosage: 1 % CREAM APPLY TO GROIN DAILY
     Route: 061
     Dates: start: 20150721, end: 20150906
  12. ACETAMINOPHEN. [Concomitant]
     Active Substance: ACETAMINOPHEN
     Dosage: UNK
     Dates: start: 20150715
  13. TRIAMCINOLONE ACETONIDE. [Concomitant]
     Active Substance: TRIAMCINOLONE ACETONIDE
     Indication: URTICARIA
     Dosage: CREAM THIN LAYER TO AFFECTED AREA TWICE DAILY AS NEEDED
     Route: 061
     Dates: start: 2013
  14. DIPHENHYDRAMINE. [Concomitant]
     Active Substance: DIPHENHYDRAMINE
     Indication: RASH MACULO-PAPULAR
     Dosage: 25MG EVERY 6 HOURS AS NEEDED
     Route: 048
     Dates: start: 20150609, end: 20150722
  15. DEXAMETHASONE. [Suspect]
     Active Substance: DEXAMETHASONE
     Dosage: 2 MG, 2X/DAY
     Route: 048
     Dates: start: 20150617, end: 20150621
  16. PERIFOSINE [Suspect]
     Active Substance: PERIFOSINE
     Indication: GLIOBLASTOMA
     Dosage: 600 MG, Q4H
     Route: 048
     Dates: start: 20150609, end: 20150609
  17. PERIFOSINE [Suspect]
     Active Substance: PERIFOSINE
     Dosage: 600 MG, EVERY 4 HOURS
     Route: 048
     Dates: start: 20150701, end: 20150701
  18. LOSARTAN. [Concomitant]
     Active Substance: LOSARTAN
     Indication: HYPERTENSION
     Dosage: 50 MG DAILY
     Route: 048
     Dates: start: 201407
  19. ZOCOR [Concomitant]
     Active Substance: SIMVASTATIN
     Indication: HYPERCHOLESTEROLAEMIA
     Dosage: 40 MG, AT BEDTIME
     Route: 048
     Dates: start: 20150715
  20. LOPID [Concomitant]
     Active Substance: GEMFIBROZIL
     Dosage: 600 MG, BID
     Dates: start: 20150722
  21. ACETAMINOPHEN. [Concomitant]
     Active Substance: ACETAMINOPHEN
     Indication: NECK PAIN
     Dosage: 500 MG TABLET, 1-2 TABLETS AS NEEDED
     Route: 048
     Dates: start: 201411, end: 20150713
  22. DEXAMETHASONE. [Suspect]
     Active Substance: DEXAMETHASONE
     Dosage: 6 MG, QD
     Route: 048
     Dates: start: 20150727, end: 20150727
  23. KEPPRA [Concomitant]
     Active Substance: LEVETIRACETAM
     Indication: CONVULSION PROPHYLAXIS
     Dosage: 1000 MG, BID
     Route: 048
     Dates: start: 201411
  24. LORATADINE. [Concomitant]
     Active Substance: LORATADINE
     Indication: URTICARIA
     Dosage: 10 MG DAILY
     Route: 048
     Dates: start: 20150721
  25. COLACE [Concomitant]
     Active Substance: DOCUSATE SODIUM
     Indication: CONSTIPATION
     Dosage: 100 MG (1 TABLET), TID, PRN
     Route: 048
     Dates: start: 20150629
  26. POLYVINYL ALCOHOL [Concomitant]
     Active Substance: POLYVINYL ALCOHOL
     Indication: DRY EYE
     Dosage: 1 DROP TOEACH EYE EVERY 4 HOURS AS NEEDED
     Dates: start: 20150613
  27. DEXAMETHASONE. [Suspect]
     Active Substance: DEXAMETHASONE
     Dosage: 2 MG DAILY
     Route: 048
     Dates: start: 20150622, end: 20150629
  28. DEXAMETHASONE. [Suspect]
     Active Substance: DEXAMETHASONE
     Dosage: 2 MG, 2X/DAY
     Route: 048
     Dates: start: 20150715, end: 20150716
  29. TEMSIROLIMUS [Suspect]
     Active Substance: TEMSIROLIMUS
     Indication: GLIOBLASTOMA
     Dosage: 140 MG, ONCE
     Route: 042
     Dates: start: 20150609, end: 20150609
  30. TEMSIROLIMUS [Suspect]
     Active Substance: TEMSIROLIMUS
     Dosage: 140 MG, ONCE (C1W3)
     Route: 042
     Dates: start: 20150716, end: 20150716
  31. PERIFOSINE [Suspect]
     Active Substance: PERIFOSINE
     Dosage: 100 MG, QD
     Route: 048
     Dates: start: 20150702, end: 20150713
  32. PERIFOSINE [Suspect]
     Active Substance: PERIFOSINE
     Dosage: 100 MG, QD
     Route: 048
     Dates: start: 20150715, end: 20150726
  33. SENNOSIDES. [Concomitant]
     Active Substance: SENNOSIDES
     Indication: CONSTIPATION
     Dosage: 17.2 MG, AT BEDTIME
     Route: 048
     Dates: start: 20150715, end: 20150728
  34. DEXAMETHASONE. [Suspect]
     Active Substance: DEXAMETHASONE
     Dosage: 6 MG, EVERY 6 HOURS
     Route: 048
     Dates: start: 20150613, end: 20150615
  35. ENOXAPARIN SODIUM. [Concomitant]
     Active Substance: ENOXAPARIN SODIUM
     Indication: THROMBOSIS PROPHYLAXIS
     Dosage: 40 MG, QD
     Route: 058
     Dates: start: 20150715, end: 20150727
  36. LORAZEPAM. [Concomitant]
     Active Substance: LORAZEPAM
     Indication: ANXIETY
     Dosage: 0.5 MG EVERY 6 HOURS AS NEEDED
     Dates: start: 20150615, end: 20150713
  37. LOPERAMIDE [Concomitant]
     Active Substance: LOPERAMIDE
     Indication: DIARRHOEA
     Dosage: 2MG EVERY 2-4 HOURS AS NEEDED
     Route: 048
     Dates: start: 20150609
  38. GRANISETRON [Concomitant]
     Active Substance: GRANISETRON
     Dosage: UNK
     Dates: start: 20150609, end: 20150722
  39. DEXAMETHASONE. [Suspect]
     Active Substance: DEXAMETHASONE
     Indication: GLIOBLASTOMA
     Dosage: 10 MG, EVERY 6 HOURS (Q6H)
     Route: 048
     Dates: start: 20150612, end: 20150613
  40. DEXAMETHASONE. [Suspect]
     Active Substance: DEXAMETHASONE
     Dosage: 1 MG (2 MG TABLET, 1/2 TABLET) DAILY
     Route: 048
     Dates: start: 20150630, end: 20150708
  41. PROZAC [Concomitant]
     Active Substance: FLUOXETINE HYDROCHLORIDE
     Indication: ANXIETY
     Dosage: 20 MG DAILY
     Route: 048
     Dates: start: 2013
  42. VITAMINS (UNSPECIFIED) [Concomitant]
     Active Substance: VITAMINS
     Dosage: UNK
     Dates: start: 20150717
  43. ATOVAQUONE. [Concomitant]
     Active Substance: ATOVAQUONE
     Dosage: UNK
     Dates: start: 20150611
  44. TEMSIROLIMUS [Suspect]
     Active Substance: TEMSIROLIMUS
     Dosage: 140 MG, ONCE (C1W2)
     Route: 042
     Dates: start: 20150708, end: 20150708
  45. PERIFOSINE [Suspect]
     Active Substance: PERIFOSINE
     Dosage: 100 MG, QD
     Route: 048
     Dates: start: 20150610, end: 20150611
  46. LIPITOR [Concomitant]
     Active Substance: ATORVASTATIN CALCIUM
     Indication: HYPERCHOLESTEROLAEMIA
     Dosage: 20 MG, QD
     Route: 048
     Dates: start: 20150423, end: 20150714
  47. NEXIUM [Concomitant]
     Active Substance: ESOMEPRAZOLE MAGNESIUM
     Indication: PROPHYLAXIS
     Dosage: 40 MG DAILY
     Route: 048
     Dates: start: 20150715
  48. AMBIEN [Concomitant]
     Active Substance: ZOLPIDEM TARTRATE
     Indication: INSOMNIA
     Dosage: 10MG AS NEEDED AT BEDTIME
     Route: 048
     Dates: start: 201411, end: 20150721

REACTIONS (4)
  - Gait disturbance [Unknown]
  - Pyrexia [Unknown]
  - Meningitis [Recovered/Resolved with Sequelae]
  - Mental disorder [Unknown]

NARRATIVE: CASE EVENT DATE: 2015
